FAERS Safety Report 5447802-0 (Version None)
Quarter: 2007Q3

REPORT INFORMATION
  Report Type: 
  Country: None (occurrence: None)
  Receive Date: 20070910
  Receipt Date: 20070830
  Transmission Date: 20080115
  Serious: Yes (Hospitalization)
  Sender: FDA-Public Use
  Company Number: GB-PFIZER INC-2007072887

PATIENT
  Age: 29 Year
  Sex: Male
  Weight: 62 kg

DRUGS (4)
  1. VARENICLINE TABLETS [Suspect]
     Indication: SMOKING CESSATION THERAPY
     Route: 048
     Dates: start: 20070126, end: 20070205
  2. AMISULPRIDE [Concomitant]
     Indication: AFFECTIVE DISORDER
     Route: 048
  3. CLONAZEPAM [Concomitant]
     Route: 048
     Dates: start: 20061020, end: 20070219
  4. PROCYCLIDINE HYDROCHLORIDE 2MG TAB [Concomitant]
     Indication: DYSTONIA
     Route: 048

REACTIONS (2)
  - AFFECTIVE DISORDER [None]
  - BLINDNESS [None]
